FAERS Safety Report 4798298-3 (Version None)
Quarter: 2005Q4

REPORT INFORMATION
  Report Type: 
  Country: None (occurrence: None)
  Receive Date: 20051011
  Receipt Date: 20050923
  Transmission Date: 20060501
  Serious: Yes (Hospitalization, Other)
  Sender: FDA-Public Use
  Company Number: 8010604

PATIENT
  Age: 20 Year
  Sex: Male
  Weight: 35.1 kg

DRUGS (8)
  1. KEPPRA [Suspect]
     Indication: CONVULSION
     Dosage: 5 ML 3/D PO
     Route: 048
  2. LISKANTIN [Suspect]
     Dosage: 750 MG
  3. FAMOTIDINE [Suspect]
     Dosage: 20 MG 2/D
  4. D-FLUORETTEN [Concomitant]
  5. LACTULOSE [Concomitant]
  6. GLYCILAX [Concomitant]
  7. NACL [Concomitant]
  8. PRACTO-CLYSS /00483901/ [Concomitant]

REACTIONS (1)
  - RHABDOMYOLYSIS [None]
